FAERS Safety Report 6300994-3 (Version None)
Quarter: 2009Q3

REPORT INFORMATION
  Report Type: 
  Country: None (occurrence: None)
  Receive Date: 20090807
  Receipt Date: 20090805
  Transmission Date: 20100115
  Serious: Yes (Hospitalization)
  Sender: FDA-Public Use
  Company Number: US-ROXANE LABORATORIES, INC.-2009-RO-00783RO

PATIENT
  Sex: Male

DRUGS (1)
  1. PREDNISONE [Suspect]

REACTIONS (2)
  - ACUTE PULMONARY OEDEMA [None]
  - ENERGY INCREASED [None]
